FAERS Safety Report 11173603 (Version 2)
Quarter: 2015Q2

REPORT INFORMATION
  Report Type: Spontaneous
  Country: JP (occurrence: JP)
  Receive Date: 20150609
  Receipt Date: 20150629
  Transmission Date: 20150821
  Serious: Yes (Other)
  Sender: FDA-Public Use
  Company Number: PHJP2015JP007734

PATIENT
  Age: 2 Year

DRUGS (1)
  1. SANDIMMUNE [Suspect]
     Active Substance: CYCLOSPORINE
     Indication: HISTIOCYTOSIS HAEMATOPHAGIC
     Dosage: 3 MG/KG, BID, OVER A PERIOD OF 3 HOURS BY DRIP EACH TIME
     Route: 041
     Dates: end: 20150511

REACTIONS (4)
  - Immunosuppressant drug level decreased [Unknown]
  - Cardiac failure [Unknown]
  - General physical health deterioration [Unknown]
  - Viral infection [Unknown]

NARRATIVE: CASE EVENT DATE: 20150511
